FAERS Safety Report 23125651 (Version 2)
Quarter: 2023Q4

REPORT INFORMATION
  Report Type: Spontaneous
  Country: US (occurrence: US)
  Receive Date: 20231030
  Receipt Date: 20231121
  Transmission Date: 20240110
  Serious: No
  Sender: FDA-Public Use
  Company Number: US-SA-SAC20231027000183

PATIENT
  Sex: Female
  Weight: 105 kg

DRUGS (16)
  1. DUPIXENT [Suspect]
     Active Substance: DUPILUMAB
     Indication: Asthma
     Dosage: 300 MG, 1X
     Route: 058
  2. DUPIXENT [Suspect]
     Active Substance: DUPILUMAB
     Dosage: 300 MG, QOW
     Route: 058
  3. IRON [Concomitant]
     Active Substance: IRON
  4. FISH OIL [Concomitant]
     Active Substance: FISH OIL
  5. VITAMIN C [Concomitant]
     Active Substance: ASCORBIC ACID
  6. LYRICA [Concomitant]
     Active Substance: PREGABALIN
  7. MUCINEX [Concomitant]
     Active Substance: GUAIFENESIN
  8. SPIRIVA [Concomitant]
     Active Substance: TIOTROPIUM BROMIDE MONOHYDRATE
  9. VENTOLIN HFA [Concomitant]
     Active Substance: ALBUTEROL SULFATE
  10. SINGULAIR [Concomitant]
     Active Substance: MONTELUKAST SODIUM
  11. ZYRTEC [Concomitant]
     Active Substance: CETIRIZINE HYDROCHLORIDE
  12. PANTOPRAZOLE SODIUM [Concomitant]
     Active Substance: PANTOPRAZOLE SODIUM
  13. LOVASTATIN [Concomitant]
     Active Substance: LOVASTATIN
  14. LISINOPRIL [Concomitant]
     Active Substance: LISINOPRIL
  15. VITAMIN D NOS [Concomitant]
     Active Substance: VITAMIN D NOS
  16. METFORMIN HYDROCHLORIDE [Concomitant]
     Active Substance: METFORMIN HYDROCHLORIDE

REACTIONS (3)
  - Bronchitis [Unknown]
  - Incorrect dose administered [Unknown]
  - Injection site pain [Unknown]
